FAERS Safety Report 17081154 (Version 3)
Quarter: 2019Q4

REPORT INFORMATION
  Report Type: Report from Study
  Country: US (occurrence: US)
  Receive Date: 20191127
  Receipt Date: 20191231
  Transmission Date: 20200122
  Serious: No
  Sender: FDA-Public Use
  Company Number: NVSC2019US002361

PATIENT
  Age: 61 Year
  Sex: Male

DRUGS (1)
  1. COSENTYX [Suspect]
     Active Substance: SECUKINUMAB
     Indication: PSORIASIS
     Dosage: 150 MG/ML, QMO (TWO SENSOREADY PENS)
     Route: 065

REACTIONS (5)
  - Plicated tongue [Recovered/Resolved]
  - Skin fissures [Unknown]
  - Psoriasis [Unknown]
  - Therapeutic response shortened [Unknown]
  - Tongue dry [Recovered/Resolved]
